FAERS Safety Report 19458459 (Version 1)
Quarter: 2021Q2

REPORT INFORMATION
  Report Type: Spontaneous
  Country: US (occurrence: US)
  Receive Date: 20210624
  Receipt Date: 20210624
  Transmission Date: 20210717
  Serious: No
  Sender: FDA-Public Use
  Company Number: US-JNJFOC-20210644298

PATIENT
  Age: 88 Year
  Sex: Male

DRUGS (1)
  1. SIMPONI ARIA [Suspect]
     Active Substance: GOLIMUMAB
     Indication: PRODUCT USED FOR UNKNOWN INDICATION
     Route: 042
     Dates: start: 202006, end: 202104

REACTIONS (3)
  - Injection site discolouration [Unknown]
  - Application site exfoliation [Unknown]
  - Skin atrophy [Unknown]

NARRATIVE: CASE EVENT DATE: 20200617
